FAERS Safety Report 9296484 (Version 2)
Quarter: 2013Q3

REPORT INFORMATION
  Report Type: Spontaneous
  Country: US (occurrence: US)
  Receive Date: 20130517
  Receipt Date: 20130909
  Transmission Date: 20140515
  Serious: Yes (Hospitalization, Other)
  Sender: FDA-Public Use
  Company Number: US-ELI_LILLY_AND_COMPANY-US201305003310

PATIENT
  Age: 64 Year
  Sex: Male

DRUGS (4)
  1. HUMALOG LISPRO [Suspect]
     Dosage: 20 U, TID
  2. HUMALOG LISPRO [Suspect]
     Indication: DIABETES MELLITUS
     Dosage: 20 U, TID
  3. HUMALOG LISPRO [Suspect]
     Dosage: 25 U, TID
  4. LANTUS [Concomitant]
     Indication: DIABETES MELLITUS

REACTIONS (2)
  - Chronic myeloid leukaemia [Not Recovered/Not Resolved]
  - Blood glucose increased [Not Recovered/Not Resolved]
